FAERS Safety Report 4304028-1 (Version None)
Quarter: 2004Q1

REPORT INFORMATION
  Report Type: 
  Country: None (occurrence: None)
  Receive Date: 20040223
  Receipt Date: 20031024
  Transmission Date: 20041129
  Serious: No
  Sender: FDA-Public Use
  Company Number: PHEH2003US09871

PATIENT
  Age: 55 Year
  Sex: Female

DRUGS (15)
  1. ZELNORM [Suspect]
     Indication: CONSTIPATION
     Dosage: 6 MG, BID
     Dates: start: 20030701, end: 20031021
  2. SYNTHROID [Concomitant]
  3. EVISTA [Concomitant]
  4. DURAGESIC [Concomitant]
  5. OXYCODONE HCL [Concomitant]
  6. TRANSDERM-SCOP (HYOSCINE) [Concomitant]
  7. FUROSEMIDE [Concomitant]
  8. PROMETHAZINE [Concomitant]
  9. MULTIVITAMIN [Concomitant]
  10. FLONASE [Concomitant]
  11. ALBUTEROL [Concomitant]
  12. COMBIVENT [Concomitant]
  13. EFFEXOR [Concomitant]
  14. LACTOBACILLUS ACIDOPHILLUS [Concomitant]
  15. DIFLUCAN [Concomitant]

REACTIONS (1)
  - WHITE BLOOD CELL COUNT DECREASED [None]
